FAERS Safety Report 7096694-5 (Version None)
Quarter: 2010Q4

REPORT INFORMATION
  Report Type: 
  Country: None (occurrence: None)
  Receive Date: 20101111
  Receipt Date: 20091029
  Transmission Date: 20110411
  Serious: No
  Sender: FDA-Public Use
  Company Number: US-KINGPHARMUSA00001-K200901369

PATIENT
  Sex: Male

DRUGS (3)
  1. EMBEDA [Suspect]
     Indication: PAIN
     Dosage: 100 MG, BID
     Route: 048
     Dates: start: 20091001, end: 20091001
  2. EMBEDA [Suspect]
     Dosage: 100 MG, TID
     Route: 048
     Dates: start: 20091001
  3. PERCOCET [Concomitant]
     Indication: BREAKTHROUGH PAIN

REACTIONS (3)
  - DRUG INEFFECTIVE [None]
  - FEELING ABNORMAL [None]
  - TREMOR [None]
